FAERS Safety Report 8777518 (Version 2)
Quarter: 2012Q4

REPORT INFORMATION
  Report Type: 
  Country: US (occurrence: US)
  Receive Date: 20120910
  Receipt Date: 20121126
  Transmission Date: 20130627
  Serious: No
  Sender: FDA-Public Use
  Company Number: US-TEVA-357982USA

PATIENT
  Age: 60 Year
  Sex: Male

DRUGS (2)
  1. COPAXONE [Suspect]
     Indication: MULTIPLE SCLEROSIS
  2. SOLUMEDROL [Concomitant]
     Dosage: 33.3333 Microgram Daily;
     Route: 042

REACTIONS (5)
  - Frustration [Unknown]
  - Arthritis infective [Unknown]
  - Localised infection [Unknown]
  - Staphylococcal infection [Unknown]
  - Urticaria [Unknown]
